FAERS Safety Report 7844684-4 (Version None)
Quarter: 2011Q4

REPORT INFORMATION
  Report Type: 
  Country: None (occurrence: None)
  Receive Date: 20111025
  Receipt Date: 20111018
  Transmission Date: 20120403
  Serious: Yes (Hospitalization)
  Sender: FDA-Public Use
  Company Number: JP-JNJFOC-20111009717

PATIENT
  Sex: Male
  Weight: 56 kg

DRUGS (6)
  1. BORTEZOMIB [Suspect]
     Dosage: CYCLE 2
     Route: 040
     Dates: start: 20110812, end: 20110812
  2. DOXORUBICIN HCL [Suspect]
     Dosage: CYCLE 2
     Route: 042
     Dates: start: 20110815, end: 20110815
  3. BORTEZOMIB [Suspect]
     Dosage: CYCLE 1
     Route: 040
     Dates: start: 20110712, end: 20110712
  4. DOXORUBICIN HCL [Suspect]
     Dosage: CYCLE 1
     Route: 042
     Dates: start: 20110715, end: 20110715
  5. DOXORUBICIN HCL [Suspect]
     Indication: MULTIPLE MYELOMA
     Dosage: CYCLE 3
     Route: 042
     Dates: start: 20110916, end: 20110916
  6. BORTEZOMIB [Suspect]
     Indication: MULTIPLE MYELOMA
     Dosage: CYCLE 3
     Route: 040
     Dates: start: 20111020, end: 20111020

REACTIONS (1)
  - BRONCHIOLITIS [None]
